FAERS Safety Report 4279939-6 (Version None)
Quarter: 2004Q1

REPORT INFORMATION
  Report Type: 
  Country: None (occurrence: None)
  Receive Date: 20040126
  Receipt Date: 20030718
  Transmission Date: 20041129
  Serious: No
  Sender: FDA-Public Use
  Company Number: A01200303255

PATIENT
  Sex: Male

DRUGS (5)
  1. FASTURTEC - (RASBURICASE) [Suspect]
     Indication: TUMOUR LYSIS SYNDROME
     Dosage: 0.2 MG/KG OTHER
     Dates: start: 20030527, end: 20030527
  2. SODIUM BICARBONATE IN PLASTIC CONTAINER [Concomitant]
  3. SODIUM POLYSTYRENE SULFONATE [Concomitant]
  4. ACTRAPID (INSULIN HUMAN) [Concomitant]
  5. CALCIUM GLUCONATE [Concomitant]

REACTIONS (2)
  - BLOOD POTASSIUM INCREASED [None]
  - BRONCHOSPASM [None]
